FAERS Safety Report 7842153-9 (Version None)
Quarter: 2011Q4

REPORT INFORMATION
  Report Type: 
  Country: None (occurrence: None)
  Receive Date: 20111024
  Receipt Date: 20111024
  Transmission Date: 20120403
  Serious: Yes (Life-Threatening, Hospitalization, Disabling, Other)
  Sender: FDA-Public Use
  Company Number: None

PATIENT
  Sex: Female
  Weight: 81.6475 kg

DRUGS (4)
  1. RESTASIS [Suspect]
     Indication: VISUAL IMPAIRMENT
     Dosage: 1 DROP/EYE 2X DAILY EYE
     Route: 047
     Dates: start: 20110312, end: 20110924
  2. RESTASIS [Suspect]
     Indication: VISION BLURRED
     Dosage: 1 DROP/EYE 2X DAILY EYE
     Route: 047
     Dates: start: 20110312, end: 20110924
  3. RESTASIS [Suspect]
     Indication: VISUAL IMPAIRMENT
     Dosage: 1 DROP/EYE 2X DAILY EYE
     Route: 047
     Dates: start: 20110919, end: 20110923
  4. RESTASIS [Suspect]
     Indication: VISION BLURRED
     Dosage: 1 DROP/EYE 2X DAILY EYE
     Route: 047
     Dates: start: 20110919, end: 20110923

REACTIONS (4)
  - CHEST PAIN [None]
  - COUGH [None]
  - DYSPNOEA [None]
  - CHEST DISCOMFORT [None]
